FAERS Safety Report 7383666-6 (Version None)
Quarter: 2011Q1

REPORT INFORMATION
  Report Type: 
  Country: None (occurrence: None)
  Receive Date: 20110330
  Receipt Date: 20110321
  Transmission Date: 20110831
  Serious: Yes (Disabling, Other)
  Sender: FDA-Public Use
  Company Number: US-ROCHE-657270

PATIENT
  Sex: Male
  Weight: 72.6 kg

DRUGS (4)
  1. ACCUTANE [Suspect]
     Indication: ACNE
     Route: 065
     Dates: start: 19930101, end: 20030101
  2. AMNESTEEM [Suspect]
     Indication: ACNE
     Route: 065
     Dates: start: 20030401, end: 20030501
  3. NASACORT [Concomitant]
  4. RHINOCORT [Concomitant]

REACTIONS (8)
  - CROHN'S DISEASE [None]
  - DEPRESSION [None]
  - INFLAMMATORY BOWEL DISEASE [None]
  - MUSCULOSKELETAL DISORDER [None]
  - SUICIDAL IDEATION [None]
  - TONSILLAR HYPERTROPHY [None]
  - BLOOD TRIGLYCERIDES INCREASED [None]
  - COLITIS ULCERATIVE [None]
